FAERS Safety Report 15778254 (Version 5)
Quarter: 2020Q1

REPORT INFORMATION
  Report Type: Spontaneous
  Country: US (occurrence: US)
  Receive Date: 20181231
  Receipt Date: 20200109
  Transmission Date: 20200409
  Serious: Yes (Other)
  Sender: FDA-Public Use
  Company Number: US-PFIZER INC-2018536358

PATIENT
  Age: 72 Year
  Sex: Female

DRUGS (29)
  1. XELJANZ [Suspect]
     Active Substance: TOFACITINIB CITRATE
     Indication: PSORIASIS
  2. ASPIRIN [ACETYLSALICYLIC ACID] [Concomitant]
     Active Substance: ASPIRIN
     Dosage: 81 MG, 1X/DAY
  3. BETAMETHASONE DIPROPIONATE. [Concomitant]
     Active Substance: BETAMETHASONE DIPROPIONATE
     Dosage: UNK UNK, CYCLIC(2/DAILY ELBOWS,HANDS 2 WKS ON,2 WKS OFF;ALTERNATE WITH CERAVE MOISTURIZING1-2 DAILY)
     Route: 061
  4. FLUTICASONE. [Concomitant]
     Active Substance: FLUTICASONE
     Dosage: 1 DF, 2X/DAY(1 PUFF 2/DAILY AT MORNING AND NIGHT)
  5. VITAMIN D3 [Concomitant]
     Active Substance: CHOLECALCIFEROL
     Dosage: UNK UNK, 2X/DAY; (CITRACAL CALCIUM SUPPLEMENT 400MG W/ VITAMIN D3, 2/DAY)
  6. TYLENOL [Concomitant]
     Active Substance: ACETAMINOPHEN
     Dosage: UNK UNK, AS NEEDED (EXTRA STRENGTH UP TO 6)
  7. BIOTIN [Concomitant]
     Active Substance: BIOTIN
  8. CELEBREX [Concomitant]
     Active Substance: CELECOXIB
     Dosage: 200 MG, 1X/DAY AT NIGHT
  9. FLAXSEED OIL [LINUM USITATISSIMUM SEED OIL] [Concomitant]
     Active Substance: HERBALS\LINSEED OIL
     Dosage: 1 DF, DAILY
  10. BIOTIN [Concomitant]
     Active Substance: BIOTIN
     Dosage: 2 DF, DAILY
  11. ALBUTEROL SULFATE. [Concomitant]
     Active Substance: ALBUTEROL SULFATE
     Dosage: UNK UNK, AS NEEDED
  12. KENALOG [Concomitant]
     Active Substance: TRIAMCINOLONE ACETONIDE
     Dosage: UNK UNK, AS NEEDED
  13. SYNTHROID [Concomitant]
     Active Substance: LEVOTHYROXINE SODIUM
     Dosage: 0.5 DF, UNK (1/2 TABLET ON 7TH DAY)
  14. CITRACAL CALCIUM PEARLS + D3 [Concomitant]
     Dosage: 400 MG, 2X/DAY; (CITRACAL CALCIUM SUPPLEMENT 400MG W/ VITAMIN D3, 2/DAY)
  15. PENLAC [Concomitant]
     Active Substance: CICLOPIROX
     Dosage: UNK UNK, AS NEEDED
  16. VOLTAREN [DICLOFENAC] [Concomitant]
     Active Substance: DICLOFENAC SODIUM
     Dosage: UNK UNK, AS NEEDED
  17. VITAMIN C [Concomitant]
     Active Substance: ASCORBIC ACID
     Dosage: UNK (VERISOL COLLAGEN 2,500 MG W/ C, E, BIOTIN, 3/DAY)
  18. OMEPRAZOLE. [Concomitant]
     Active Substance: OMEPRAZOLE
     Dosage: 40 MG, DAILY (2/DAY BEFORE MEALS)
  19. ACIDOPHILUS PROBIOTIC [Concomitant]
     Active Substance: LACTOBACILLUS ACIDOPHILUS
     Dosage: UNK; (100 MILLION ORGANISMS 1/DAY)
  20. VITAMIN E [Concomitant]
     Active Substance: .ALPHA.-TOCOPHEROL
     Dosage: UNK (VERISOL COLLAGEN 2,500 MG W/ C, E, BIOTIN, 3/DAY)
  21. XELJANZ [Suspect]
     Active Substance: TOFACITINIB CITRATE
     Indication: RHEUMATOID ARTHRITIS
     Dosage: 5 MG, 2X/DAY
     Route: 048
     Dates: start: 2018
  22. SYNTHROID [Concomitant]
     Active Substance: LEVOTHYROXINE SODIUM
     Dosage: 1 DF, 1X/DAY (1/DAY AT MORNING FOR 6 DAYS)
  23. MELATONIN [Concomitant]
     Active Substance: MELATONIN
     Dosage: 5 MG, 1X/DAY AT NIGHT
  24. MAXALT [Concomitant]
     Active Substance: RIZATRIPTAN BENZOATE
     Dosage: 5 MG, AS NEEDED
  25. LIDOCAINE. [Concomitant]
     Active Substance: LIDOCAINE
     Dosage: 15 ML, AS NEEDED (NO MORE THAN 8/DAY)
  26. CERAVE ITCH RELIEF MOISTURIZING [Concomitant]
     Active Substance: PRAMOXINE HYDROCHLORIDE
     Dosage: UNK UNK, DAILY(TOPICALLY2/DAILY ELBOWS,HANDS 2WKS ON,2WKS OFF;ALTERNATE WITH CERAVE MOISTURIZING1-2)
  27. RANITIDINE. [Concomitant]
     Active Substance: RANITIDINE
     Dosage: 1 DF, 1X/DAY AT NIGHT
  28. XELJANZ [Suspect]
     Active Substance: TOFACITINIB CITRATE
     Indication: PSORIATIC ARTHROPATHY
  29. CLARITIN [CLARITHROMYCIN] [Concomitant]
     Active Substance: CLARITHROMYCIN
     Dosage: 10 MG, AS NEEDED

REACTIONS (6)
  - Sinusitis [Recovered/Resolved]
  - Cystitis [Recovered/Resolved]
  - Cataract [Recovered/Resolved]
  - Influenza [Recovered/Resolved]
  - Cough [Recovered/Resolved]
  - Fatigue [Unknown]

NARRATIVE: CASE EVENT DATE: 2018
